FAERS Safety Report 4805177-1 (Version None)
Quarter: 2005Q4

REPORT INFORMATION
  Report Type: 
  Country: None (occurrence: None)
  Receive Date: 20051017
  Receipt Date: 20050919
  Transmission Date: 20060501
  Serious: Yes (Other)
  Sender: FDA-Public Use
  Company Number: 005662

PATIENT
  Age: 48 Year
  Sex: Male
  Weight: 81.6 kg

DRUGS (2)
  1. DIAMOX [Suspect]
     Indication: EPILEPSY
     Dosage: 1 CAPS., BID, ORAL
     Route: 048
     Dates: start: 19820101
  2. PHENOBARBITAL TAB [Concomitant]

REACTIONS (4)
  - CONVULSION [None]
  - LEUKAEMIA [None]
  - OFF LABEL USE [None]
  - PHARMACEUTICAL PRODUCT COMPLAINT [None]
